FAERS Safety Report 6997600-1 (Version None)
Quarter: 2010Q3

REPORT INFORMATION
  Report Type: 
  Country: None (occurrence: None)
  Receive Date: 20100918
  Receipt Date: 20091103
  Transmission Date: 20110219
  Serious: No
  Sender: FDA-Public Use
  Company Number: US-WYE-H12057509

PATIENT
  Sex: Female

DRUGS (2)
  1. ADVIL PM [Suspect]
  2. OXYCODONE HCL [Suspect]

REACTIONS (1)
  - MUSCLE TWITCHING [None]
